FAERS Safety Report 4444599-8 (Version None)
Quarter: 2004Q3

REPORT INFORMATION
  Report Type: 
  Country: None (occurrence: None)
  Receive Date: 20040908
  Receipt Date: 20040830
  Transmission Date: 20050211
  Serious: Yes (Other)
  Sender: FDA-Public Use
  Company Number: 2004-08-1669

PATIENT
  Sex: Female

DRUGS (1)
  1. GENTALLINE (GENTAMICIN SULFATE) INJECTABLE SOLUTION [Suspect]
     Dosage: 80 MG BID (4-5 DAYS)

REACTIONS (3)
  - BALANCE DISORDER [None]
  - FALL [None]
  - LOWER LIMB FRACTURE [None]
